FAERS Safety Report 4700864-8 (Version None)
Quarter: 2005Q2

REPORT INFORMATION
  Report Type: 
  Country: None (occurrence: None)
  Receive Date: 20050114
  Receipt Date: 20050114
  Transmission Date: 20051028
  Serious: Yes (Hospitalization)
  Sender: FDA-Public Use
  Company Number: None

PATIENT
  Sex: Female
  Weight: 68.0396 kg

DRUGS (2)
  1. BUTALBITAL ACETAMINOPHEN AND CAFFEINE [Suspect]
     Indication: HEADACHE
     Dosage: 50/300/40 QID
  2. BUTALBITAL ACETAMINOPHEN AND CAFFEINE [Suspect]
     Indication: PAIN
     Dosage: 50/300/40 QID

REACTIONS (2)
  - ASTHENIA [None]
  - NAUSEA [None]
